FAERS Safety Report 20810258 (Version 2)
Quarter: 2022Q2

REPORT INFORMATION
  Report Type: Spontaneous
  Country: US (occurrence: US)
  Receive Date: 20220510
  Receipt Date: 20220516
  Transmission Date: 20220721
  Serious: No
  Sender: FDA-Public Use
  Company Number: US-JNJFOC-20220505728

PATIENT
  Sex: Male

DRUGS (32)
  1. SIMPONI [Suspect]
     Active Substance: GOLIMUMAB
     Indication: Rheumatoid arthritis
     Route: 058
  2. TYLENOL [Suspect]
     Active Substance: ACETAMINOPHEN
     Indication: Influenza
     Route: 065
  3. TYLENOL [Suspect]
     Active Substance: ACETAMINOPHEN
     Indication: Oropharyngeal pain
  4. TYLENOL [Suspect]
     Active Substance: ACETAMINOPHEN
     Indication: Pain
  5. TYLENOL [Suspect]
     Active Substance: ACETAMINOPHEN
     Indication: Dysmenorrhoea
  6. TYLENOL [Suspect]
     Active Substance: ACETAMINOPHEN
     Indication: Nasopharyngitis
  7. TYLENOL [Suspect]
     Active Substance: ACETAMINOPHEN
     Indication: Toothache
  8. TYLENOL [Suspect]
     Active Substance: ACETAMINOPHEN
     Indication: Premenstrual pain
  9. TYLENOL [Suspect]
     Active Substance: ACETAMINOPHEN
     Indication: Myalgia
  10. TYLENOL [Suspect]
     Active Substance: ACETAMINOPHEN
     Indication: Headache
  11. TYLENOL [Suspect]
     Active Substance: ACETAMINOPHEN
     Indication: Pyrexia
  12. TYLENOL [Suspect]
     Active Substance: ACETAMINOPHEN
     Indication: Nasopharyngitis
  13. TYLENOL [Suspect]
     Active Substance: ACETAMINOPHEN
     Indication: Pain
  14. TYLENOL [Suspect]
     Active Substance: ACETAMINOPHEN
     Indication: Back pain
  15. TYLENOL [Suspect]
     Active Substance: ACETAMINOPHEN
     Indication: Arthralgia
  16. TYLENOL [Suspect]
     Active Substance: ACETAMINOPHEN
     Indication: Oropharyngeal pain
     Route: 065
  17. TYLENOL [Suspect]
     Active Substance: ACETAMINOPHEN
     Indication: Influenza
  18. TYLENOL [Suspect]
     Active Substance: ACETAMINOPHEN
     Indication: Nasopharyngitis
  19. TYLENOL [Suspect]
     Active Substance: ACETAMINOPHEN
     Indication: Pyrexia
  20. TYLENOL [Suspect]
     Active Substance: ACETAMINOPHEN
     Indication: Premenstrual pain
  21. TYLENOL [Suspect]
     Active Substance: ACETAMINOPHEN
     Indication: Pain
  22. TYLENOL [Suspect]
     Active Substance: ACETAMINOPHEN
     Indication: Dysmenorrhoea
  23. TYLENOL [Suspect]
     Active Substance: ACETAMINOPHEN
     Indication: Toothache
  24. TYLENOL [Suspect]
     Active Substance: ACETAMINOPHEN
     Indication: Nasopharyngitis
  25. TYLENOL [Suspect]
     Active Substance: ACETAMINOPHEN
     Indication: Myalgia
  26. TYLENOL [Suspect]
     Active Substance: ACETAMINOPHEN
     Indication: Headache
  27. TYLENOL [Suspect]
     Active Substance: ACETAMINOPHEN
     Indication: Arthralgia
  28. TYLENOL [Suspect]
     Active Substance: ACETAMINOPHEN
     Indication: Back pain
  29. TYLENOL [Suspect]
     Active Substance: ACETAMINOPHEN
     Indication: Pain
  30. ARAVA [Concomitant]
     Active Substance: LEFLUNOMIDE
     Indication: Product used for unknown indication
     Route: 065
  31. ASPIRIN [Concomitant]
     Active Substance: ASPIRIN
     Indication: Product used for unknown indication
     Route: 065
  32. PANTOPRAZOLE [Concomitant]
     Active Substance: PANTOPRAZOLE
     Indication: Product used for unknown indication
     Route: 065

REACTIONS (1)
  - Drug ineffective [Unknown]
